FAERS Safety Report 17461203 (Version 1)
Quarter: 2020Q1

REPORT INFORMATION
  Report Type: Spontaneous
  Country: BR (occurrence: BR)
  Receive Date: 20200226
  Receipt Date: 20200226
  Transmission Date: 20200409
  Serious: Yes (Hospitalization, Other)
  Sender: FDA-Public Use
  Company Number: BR-AMGEN-BRASP2020028564

PATIENT
  Age: 39 Year
  Sex: Female
  Weight: 80.9 kg

DRUGS (11)
  1. NEULASTIM [Suspect]
     Active Substance: PEGFILGRASTIM
     Indication: PROPHYLAXIS
     Dosage: 6 MILLIGRAM, AFTER CHEMO
     Route: 065
     Dates: start: 20200117
  2. FILGRASTIM [Suspect]
     Active Substance: FILGRASTIM
     Indication: FEBRILE NEUTROPENIA
  3. FILGRASTIM [Suspect]
     Active Substance: FILGRASTIM
     Indication: LEUKOPENIA
     Dosage: 300 MICROGRAM
     Route: 065
     Dates: start: 20200125, end: 20200127
  4. GENUXAL [Suspect]
     Active Substance: CYCLOPHOSPHAMIDE
     Indication: BREAST CANCER FEMALE
     Dosage: 600 MILLIGRAM/SQ. METER, Q2WK  (SALINE 250 ML FOR 30 MINUTES) (DOSE WAS REDUCED BY 20%)
     Route: 042
     Dates: start: 20200116, end: 20200206
  5. DEXAMETHASONE. [Concomitant]
     Active Substance: DEXAMETHASONE
     Dosage: 12 MILLIGRAM
  6. EMEND [FOSAPREPITANT MEGLUMINE] [Concomitant]
     Dosage: 150 MILLIGRAM
  7. ONICIT [Concomitant]
     Active Substance: PALONOSETRON HYDROCHLORIDE
     Dosage: 0.5 MILLIGRAM
  8. FILGRASTIM [Suspect]
     Active Substance: FILGRASTIM
     Indication: ANAEMIA
  9. FAULDOXO [Suspect]
     Active Substance: DOXORUBICIN HYDROCHLORIDE
     Dosage: DOSE WAS REDUCED BY 20%
     Route: 042
     Dates: start: 20200206
  10. FAULDOXO [Suspect]
     Active Substance: DOXORUBICIN HYDROCHLORIDE
     Indication: BREAST CANCER FEMALE
     Dosage: 60 MILLIGRAM/SQ. METER, Q2WK (GLYCOSIDE SERUM 5% 50 ML FOR 15 MINUTES)
     Route: 042
     Dates: start: 20200116, end: 20200206
  11. GENUXAL [Suspect]
     Active Substance: CYCLOPHOSPHAMIDE
     Dosage: DOSE WAS REDUCED BY 20%
     Route: 042
     Dates: start: 20200206

REACTIONS (9)
  - Asthenia [Recovered/Resolved]
  - Febrile neutropenia [Recovered/Resolved]
  - Hypotension [Recovered/Resolved]
  - Tachycardia [Recovered/Resolved]
  - Urinary tract infection [Recovered/Resolved]
  - Anaemia [Recovered/Resolved]
  - Leukopenia [Recovered/Resolved]
  - Dizziness [Recovered/Resolved]
  - Drug ineffective [Unknown]

NARRATIVE: CASE EVENT DATE: 202001
